FAERS Safety Report 7177351-3 (Version None)
Quarter: 2010Q4

REPORT INFORMATION
  Report Type: 
  Country: None (occurrence: None)
  Receive Date: 20101220
  Receipt Date: 20101206
  Transmission Date: 20110411
  Serious: Yes (Other)
  Sender: FDA-Public Use
  Company Number: PHHY2010ZA83098

PATIENT
  Sex: Female

DRUGS (5)
  1. VALSARTAN  AND HYDROCHLOROTHIAZIDE [Suspect]
     Dosage: 80 MG
     Route: 048
  2. ELTROXIN [Concomitant]
  3. DIOTROXIN [Concomitant]
  4. GLUCOPHAGE [Concomitant]
  5. LIVA [Concomitant]
     Indication: LIVER DISORDER

REACTIONS (7)
  - BLISTER [None]
  - ECZEMA [None]
  - INSOMNIA [None]
  - MUSCLE SPASMS [None]
  - PRURITUS [None]
  - RASH [None]
  - THYROID DISORDER [None]
